FAERS Safety Report 10802858 (Version 2)
Quarter: 2015Q1

REPORT INFORMATION
  Report Type: Spontaneous
  Country: US (occurrence: US)
  Receive Date: 20150217
  Receipt Date: 20150305
  Transmission Date: 20150721
  Serious: Yes (Other)
  Sender: FDA-Public Use
  Company Number: US-PFIZER INC-2015058592

PATIENT
  Age: 78 Year
  Sex: Female

DRUGS (2)
  1. VENLAFAXINE HCL [Suspect]
     Active Substance: VENLAFAXINE HYDROCHLORIDE
     Dosage: 15 MG, 1X/DAY
     Dates: start: 2003
  2. CLONIDINE. [Concomitant]
     Active Substance: CLONIDINE
     Indication: HYPERTENSION
     Dosage: 1 MG, 2X/DAY
     Dates: start: 2000

REACTIONS (5)
  - Hallucination [Recovered/Resolved]
  - Drug hypersensitivity [Recovered/Resolved]
  - Fear [Recovered/Resolved]
  - Feeling abnormal [Recovered/Resolved]
  - Drug dispensing error [Unknown]
